FAERS Safety Report 17886131 (Version 1)
Quarter: 2020Q2

REPORT INFORMATION
  Report Type: Spontaneous
  Country: US (occurrence: US)
  Receive Date: 20200611
  Receipt Date: 20200611
  Transmission Date: 20200714
  Serious: No
  Sender: FDA-Public Use
  Company Number: US-ELI_LILLY_AND_COMPANY-US202006004627

PATIENT
  Sex: Female

DRUGS (1)
  1. REYVOW [Suspect]
     Active Substance: LASMIDITAN
     Indication: MIGRAINE PROPHYLAXIS
     Dosage: 100 MG, UNKNOWN
     Route: 048

REACTIONS (5)
  - Hot flush [Unknown]
  - Somnolence [Unknown]
  - Drug ineffective [Unknown]
  - Nausea [Unknown]
  - Intentional product misuse [Unknown]
